FAERS Safety Report 24088816 (Version 3)
Quarter: 2024Q4

REPORT INFORMATION
  Report Type: Report from Study
  Country: US (occurrence: US)
  Receive Date: 20240715
  Receipt Date: 20241105
  Transmission Date: 20250115
  Serious: Yes (Other)
  Sender: ROCHE
  Company Number: US-ROCHE-10000018501

PATIENT
  Sex: Female

DRUGS (6)
  1. XOLAIR [Suspect]
     Active Substance: OMALIZUMAB
     Indication: Product used for unknown indication
     Route: 065
  2. MONTELUKAST [Concomitant]
     Active Substance: MONTELUKAST
  3. OMEPRAZOLE [Concomitant]
     Active Substance: OMEPRAZOLE
  4. METRONIDAZOLE [Concomitant]
     Active Substance: METRONIDAZOLE
  5. FLUCONAZOLE [Concomitant]
     Active Substance: FLUCONAZOLE
  6. SERTRALINE [Concomitant]
     Active Substance: SERTRALINE HYDROCHLORIDE

REACTIONS (19)
  - Angioedema [Unknown]
  - Maternal exposure before pregnancy [Unknown]
  - Rash [Unknown]
  - Gastritis [Unknown]
  - Abnormal dreams [Unknown]
  - Hallucination [Unknown]
  - Tachycardia [Unknown]
  - Panic disorder [Unknown]
  - Anxiety [Unknown]
  - Nausea [Unknown]
  - Decreased appetite [Unknown]
  - Bladder pain [Unknown]
  - Blood urine present [Unknown]
  - Brain fog [Unknown]
  - Attention deficit hyperactivity disorder [Unknown]
  - Fatigue [Unknown]
  - Insomnia [Unknown]
  - Sympathomimetic effect [Unknown]
  - Maternal exposure during pregnancy [Unknown]
